FAERS Safety Report 11444510 (Version 3)
Quarter: 2015Q3

REPORT INFORMATION
  Report Type: Spontaneous
  Country: US (occurrence: US)
  Receive Date: 20150902
  Receipt Date: 20150929
  Transmission Date: 20151125
  Serious: Yes (Life-Threatening, Hospitalization, Disabling, Other)
  Sender: FDA-Public Use
  Company Number: US-009507513-1508USA013287

PATIENT
  Age: 79 Year
  Sex: Male

DRUGS (6)
  1. ACYCLOVIR. [Concomitant]
     Active Substance: ACYCLOVIR
  2. KEYTRUDA [Suspect]
     Active Substance: PEMBROLIZUMAB
     Indication: PLASMA CELL MYELOMA
     Dosage: 2 MG/KG, UNK
     Route: 042
     Dates: start: 20150716
  3. ALBUTEROL. [Concomitant]
     Active Substance: ALBUTEROL
  4. KEYTRUDA [Suspect]
     Active Substance: PEMBROLIZUMAB
     Dosage: CYCLE 2, DAY 1
     Route: 042
     Dates: start: 20150910
  5. METOPROLOL [Concomitant]
     Active Substance: METOPROLOL
  6. COLACE [Concomitant]
     Active Substance: DOCUSATE SODIUM

REACTIONS (3)
  - Hypercalcaemia [Not Recovered/Not Resolved]
  - Anaemia [Not Recovered/Not Resolved]
  - Chronic kidney disease [Not Recovered/Not Resolved]

NARRATIVE: CASE EVENT DATE: 20150716
